FAERS Safety Report 17680291 (Version 1)
Quarter: 2020Q2

REPORT INFORMATION
  Report Type: Spontaneous
  Country: US (occurrence: US)
  Receive Date: 20200417
  Receipt Date: 20200417
  Transmission Date: 20200714
  Serious: Yes (Hospitalization)
  Sender: FDA-Public Use
  Company Number: None

PATIENT
  Age: 46 Year
  Sex: Male

DRUGS (1)
  1. ACETYLCYSTEINE (ACETYLCYSTEINE 20% SOLN,INHL,30ML) [Suspect]
     Active Substance: ACETYLCYSTEINE
     Indication: DYSPNOEA
     Dates: start: 20190612, end: 20190612

REACTIONS (3)
  - Anaphylactic reaction [None]
  - Hypotension [None]
  - Urticaria [None]

NARRATIVE: CASE EVENT DATE: 20190613
